FAERS Safety Report 10025356 (Version 3)
Quarter: 2014Q2

REPORT INFORMATION
  Report Type: Report from Study
  Country: US (occurrence: US)
  Receive Date: 20140320
  Receipt Date: 20140603
  Transmission Date: 20141212
  Serious: Yes (Hospitalization)
  Sender: FDA-Public Use
  Company Number: PHEH2014US004348

PATIENT
  Sex: Female

DRUGS (6)
  1. GILENYA [Suspect]
     Indication: MULTIPLE SCLEROSIS
     Dosage: 0.5 MG, QD
     Route: 048
     Dates: start: 20130502
  2. ADVAIR [Concomitant]
  3. ADVEL [Concomitant]
  4. ALBUTEROL [Concomitant]
  5. ALEVE [Concomitant]
  6. HYDROCHLOROTHIAZIDE [Concomitant]

REACTIONS (5)
  - Asthma [Unknown]
  - Bronchitis [Unknown]
  - Nasopharyngitis [Not Recovered/Not Resolved]
  - Rhinorrhoea [Not Recovered/Not Resolved]
  - Infection [Unknown]
